FAERS Safety Report 19037067 (Version 3)
Quarter: 2021Q2

REPORT INFORMATION
  Report Type: Spontaneous
  Country: AT (occurrence: AT)
  Receive Date: 20210322
  Receipt Date: 20210409
  Transmission Date: 20210717
  Serious: Yes (Death)
  Sender: FDA-Public Use
  Company Number: AT-EXELIXIS-CABO-21038695

PATIENT
  Age: 52 Year
  Sex: Female

DRUGS (8)
  1. BISOPROLOL [Concomitant]
     Active Substance: BISOPROLOL
  2. ONDANSETRON [Concomitant]
     Active Substance: ONDANSETRON
  3. METAMIZOL [Concomitant]
     Active Substance: METAMIZOLE SODIUM
  4. CANDESARTAN. [Concomitant]
     Active Substance: CANDESARTAN
  5. CABOMETYX [Suspect]
     Active Substance: CABOZANTINIB S-MALATE
     Indication: MALIGNANT NEOPLASM OF UNKNOWN PRIMARY SITE
     Dosage: 60 MG, QD
     Route: 048
     Dates: start: 20210202
  6. PREDNISOLONE. [Concomitant]
     Active Substance: PREDNISOLONE
  7. PANTOPRAZOLE [Concomitant]
     Active Substance: PANTOPRAZOLE
  8. METOCLOPRAMIDE. [Concomitant]
     Active Substance: METOCLOPRAMIDE
     Dosage: UNK

REACTIONS (2)
  - Off label use [Unknown]
  - Death [Fatal]

NARRATIVE: CASE EVENT DATE: 20210218
